FAERS Safety Report 5927181-2 (Version None)
Quarter: 2008Q4

REPORT INFORMATION
  Report Type: 
  Country: None (occurrence: None)
  Receive Date: 20081022
  Receipt Date: 20081017
  Transmission Date: 20090506
  Serious: Yes (Hospitalization)
  Sender: FDA-Public Use
  Company Number: DE-GENENTECH-270018

PATIENT
  Sex: Male

DRUGS (1)
  1. RAPTIVA [Suspect]
     Indication: PSORIASIS
     Dosage: 0.8 MG/KG, 1/WEEK
     Route: 058
     Dates: start: 20050131, end: 20080930

REACTIONS (1)
  - ENCEPHALITIS [None]
